FAERS Safety Report 4712070-1 (Version None)
Quarter: 2005Q2

REPORT INFORMATION
  Report Type: 
  Country: None (occurrence: None)
  Receive Date: 20050629
  Receipt Date: 20050406
  Transmission Date: 20051028
  Serious: No
  Sender: FDA-Public Use
  Company Number: 05P-163-0296538-00

PATIENT
  Age: 73 Year
  Sex: Female

DRUGS (2)
  1. HUMIRA [Suspect]
     Indication: RHEUMATOID ARTHRITIS
     Dosage: 40 MG, SUBCUTANEOUS
     Route: 058
     Dates: start: 20050301
  2. ATENOLOL [Concomitant]

REACTIONS (5)
  - BLOOD PRESSURE INCREASED [None]
  - BURSITIS [None]
  - EAR DISORDER [None]
  - GENITAL INFECTION FUNGAL [None]
  - HEART RATE INCREASED [None]
